FAERS Safety Report 8130561-0 (Version None)
Quarter: 2012Q1

REPORT INFORMATION
  Report Type: 
  Country: None (occurrence: None)
  Receive Date: 20120211
  Receipt Date: 20120118
  Transmission Date: 20120608
  Serious: Yes (Other)
  Sender: FDA-Public Use
  Company Number: PHHY2012BR005118

PATIENT
  Age: 51 Year
  Sex: Female

DRUGS (3)
  1. DIAZEPAM [Suspect]
     Indication: MULTIPLE SCLEROSIS
  2. CARBAMAZEPINE [Suspect]
     Indication: MULTIPLE SCLEROSIS
  3. CHLORPROMAZINE HCL [Suspect]
     Indication: MULTIPLE SCLEROSIS

REACTIONS (5)
  - AUTONOMIC NERVOUS SYSTEM IMBALANCE [None]
  - MENTAL STATUS CHANGES [None]
  - MUSCLE RIGIDITY [None]
  - HYPERTHERMIA [None]
  - NEUROLEPTIC MALIGNANT SYNDROME [None]
